FAERS Safety Report 9719960 (Version 2)
Quarter: 2013Q4

REPORT INFORMATION
  Report Type: Spontaneous
  Country: BR (occurrence: BR)
  Receive Date: 20131128
  Receipt Date: 20131219
  Transmission Date: 20140711
  Serious: Yes (Death, Hospitalization)
  Sender: FDA-Public Use
  Company Number: BR-009507513-1311BRA008052

PATIENT
  Age: 68 Year
  Sex: Male
  Weight: 75 kg

DRUGS (9)
  1. INTERFERON ALFA-2B [Suspect]
     Indication: HEPATITIS C
     Dosage: 80 MICROGRAM, QW
     Route: 058
     Dates: start: 2002, end: 2003
  2. INTERFERON ALFA-2B [Suspect]
     Dosage: 80 MICROGRAM, QW
     Route: 058
     Dates: start: 2008, end: 2009
  3. INTERFERON ALFA-2B [Suspect]
     Dosage: 80 MICROGRAM, QW
     Route: 058
     Dates: start: 20131104
  4. RIBAVIRIN (NON-MERCK) [Concomitant]
     Indication: HEPATITIS C
     Dosage: 500 MG, BID
     Route: 048
     Dates: start: 2002, end: 2003
  5. RIBAVIRIN (NON-MERCK) [Concomitant]
     Dosage: 500 MG, BID
     Route: 048
     Dates: start: 2008, end: 2009
  6. RIBAVIRIN (NON-MERCK) [Concomitant]
     Dosage: 500 MG, BID
     Route: 048
     Dates: start: 20131104
  7. DAONIL [Concomitant]
     Indication: DIABETES MELLITUS
     Dosage: 1 DF, QD
     Route: 048
  8. MICARDIS [Concomitant]
     Indication: HYPERTENSION
     Dosage: 80 MG, QAM
     Route: 048
  9. AMLODIPINE [Concomitant]
     Indication: HYPERTENSION
     Dosage: 5 MG, QD
     Route: 048

REACTIONS (27)
  - Death [Fatal]
  - Umbilical hernia [Recovered/Resolved]
  - Umbilical hernia repair [Recovered/Resolved]
  - Arterial occlusive disease [Recovered/Resolved]
  - Catheterisation cardiac [Recovered/Resolved]
  - Pallor [Recovered/Resolved]
  - Asthenia [Recovered/Resolved]
  - Syncope [Recovered/Resolved]
  - Anaemia [Recovered/Resolved]
  - Hepatitis C [Recovered/Resolved]
  - Pallor [Recovered/Resolved]
  - Asthenia [Recovered/Resolved]
  - Syncope [Recovered/Resolved]
  - Syncope [Recovered/Resolved]
  - Fatigue [Recovered/Resolved]
  - Nausea [Recovered/Resolved]
  - Anaemia [Recovered/Resolved]
  - Cataract [Recovered/Resolved]
  - Cataract operation [Recovered/Resolved]
  - Retinal haemorrhage [Recovered/Resolved]
  - Retinal operation [Recovered/Resolved]
  - Hepatitis C [Not Recovered/Not Resolved]
  - Asthenia [Not Recovered/Not Resolved]
  - Nausea [Not Recovered/Not Resolved]
  - Pain in extremity [Not Recovered/Not Resolved]
  - Back pain [Not Recovered/Not Resolved]
  - Weight decreased [Not Recovered/Not Resolved]
